FAERS Safety Report 10403835 (Version 1)
Quarter: 2014Q3

REPORT INFORMATION
  Report Type: Spontaneous
  Country: US (occurrence: US)
  Receive Date: 20140822
  Receipt Date: 20140822
  Transmission Date: 20150326
  Serious: No
  Sender: FDA-Public Use
  Company Number: US-NOVEN-14US009715

PATIENT
  Sex: Female

DRUGS (1)
  1. MINIVELLE [Suspect]
     Active Substance: ESTRADIOL
     Indication: HOT FLUSH
     Dosage: 0.05 MG/DAY, TWICE WEEKLY
     Route: 062
     Dates: start: 20140519

REACTIONS (3)
  - Product quality issue [Not Recovered/Not Resolved]
  - No adverse event [None]
  - Incorrect drug administration duration [Recovered/Resolved]

NARRATIVE: CASE EVENT DATE: 2014
